FAERS Safety Report 22200604 (Version 2)
Quarter: 2023Q2

REPORT INFORMATION
  Report Type: Report from Study
  Country: FR (occurrence: None)
  Receive Date: 20230412
  Receipt Date: 20230517
  Transmission Date: 20230722
  Serious: Yes (Hospitalization)
  Sender: FDA-Public Use
  Company Number: US-ROCHE-3224879

PATIENT
  Age: 71 Year
  Sex: Male
  Weight: 73 kg

DRUGS (25)
  1. BEVACIZUMAB [Suspect]
     Active Substance: BEVACIZUMAB
     Indication: Colorectal cancer
     Dosage: SUBSEQUENT DOSAGE RECEIVED ON 22-FEB-2022, 07-MAR-2022, 21-MAR-2022, 04-APR-2022, 19-APR-2022, 02-MA
     Route: 041
     Dates: start: 20220207, end: 20220207
  2. ETRUMADENANT [Suspect]
     Active Substance: ETRUMADENANT
     Indication: Colorectal cancer
     Dosage: SUBSEQUENT DOSAGE RECEIVED ON 04-APR-2022, 02-MAY-2022, 1-JUN-2022, 27-JUN-2022, 02-AUG-2022
     Route: 048
     Dates: start: 20220307, end: 20220403
  3. ZIMBERELIMAB [Suspect]
     Active Substance: ZIMBERELIMAB
     Indication: Colorectal cancer
     Dosage: SUBSEQUENT DOSAGE RECEIVED ON 04-APR-2022, 02-MAY-2022, 01-JUN-2022, 02-JUN-2022, 27-JUN-2022, 02-AU
     Route: 041
     Dates: start: 20220307
  4. LEUCOVORIN [Suspect]
     Active Substance: LEUCOVORIN
     Indication: Colorectal cancer
     Dosage: SUBSEQUENT DOSAGE RECEIVED ON 22-FEB-2022, 07-MAR-2022, 21-MAR-2022, 04-APR-2022, 19-APR-2022, 2-MAY
     Route: 041
     Dates: start: 20220207, end: 20220817
  5. OXALIPLATIN [Suspect]
     Active Substance: OXALIPLATIN
     Indication: Colorectal cancer
     Dosage: SUBSEQUENT DOSES RECEIVED ON 21-MAR-2022, 04-APR-2022, 19-APR-2022, 02-MAY-2022, 16-MAY-2022, 01-JUN
     Route: 041
     Dates: start: 20220207, end: 20220711
  6. OXALIPLATIN [Suspect]
     Active Substance: OXALIPLATIN
     Dosage: SUBSEQUENT DOSES RECEIVED ON 07-MAR-2022/17-AUG-2022:, 02-AUG-2022, 17-AUG-2022,
     Route: 041
     Dates: start: 20220222, end: 20220802
  7. FLUOROURACIL [Suspect]
     Active Substance: FLUOROURACIL
     Indication: Colorectal cancer
     Route: 040
     Dates: start: 20220207, end: 20220307
  8. FLUOROURACIL [Suspect]
     Active Substance: FLUOROURACIL
     Route: 040
     Dates: start: 20220207, end: 20220207
  9. FLUOROURACIL [Suspect]
     Active Substance: FLUOROURACIL
     Dosage: SUBSEQUENT DOSAGE RECEIVED ON 04-APR-2022
     Route: 040
     Dates: start: 20220321, end: 20220321
  10. FLUOROURACIL [Suspect]
     Active Substance: FLUOROURACIL
     Route: 040
     Dates: start: 20220419, end: 20220627
  11. FLUOROURACIL [Suspect]
     Active Substance: FLUOROURACIL
     Indication: Colorectal cancer
     Dosage: SUBSEQUENT DOSAGE RECEIVED ON 7-MAR-2022
     Route: 041
     Dates: start: 20220222
  12. FLUOROURACIL [Suspect]
     Active Substance: FLUOROURACIL
     Route: 041
     Dates: start: 20220321, end: 20220321
  13. FLUOROURACIL [Suspect]
     Active Substance: FLUOROURACIL
     Route: 041
     Dates: start: 20220419, end: 20220601
  14. FLUOROURACIL [Suspect]
     Active Substance: FLUOROURACIL
     Route: 041
     Dates: start: 20220613, end: 20220613
  15. FLUOROURACIL [Suspect]
     Active Substance: FLUOROURACIL
     Route: 041
     Dates: start: 20220627, end: 20220627
  16. FLUOROURACIL [Suspect]
     Active Substance: FLUOROURACIL
     Route: 041
     Dates: start: 20220711, end: 20220711
  17. FLUOROURACIL [Suspect]
     Active Substance: FLUOROURACIL
     Route: 041
     Dates: start: 20220817, end: 20220817
  18. METHYLPREDNISOLONE [Concomitant]
     Active Substance: METHYLPREDNISOLONE
     Dates: start: 20220502
  19. ACETAMINOPHEN [Concomitant]
     Active Substance: ACETAMINOPHEN
  20. DESLORATADINE [Concomitant]
     Active Substance: DESLORATADINE
     Dates: start: 20220530
  21. PREDNISOLONE [Concomitant]
     Active Substance: PREDNISOLONE
     Dates: start: 20220801
  22. POTASSIUM CHLORIDE [Concomitant]
     Active Substance: POTASSIUM CHLORIDE
     Dates: start: 20220801
  23. SODIUM CARBONATE [Concomitant]
     Active Substance: SODIUM CARBONATE
     Dates: start: 20220801
  24. SODIUM CHLORIDE [Concomitant]
     Active Substance: SODIUM CHLORIDE
     Dates: start: 20220801
  25. POLYETHYLENE GLYCOL 3350 [Concomitant]
     Active Substance: POLYETHYLENE GLYCOL 3350
     Dates: start: 20220801

REACTIONS (2)
  - Deep vein thrombosis [Not Recovered/Not Resolved]
  - Pyrexia [Recovered/Resolved]

NARRATIVE: CASE EVENT DATE: 20220427
